FAERS Safety Report 7660321-6 (Version None)
Quarter: 2011Q3

REPORT INFORMATION
  Report Type: 
  Country: None (occurrence: None)
  Receive Date: 20110805
  Receipt Date: 20110720
  Transmission Date: 20111222
  Serious: Yes (Hospitalization, Other)
  Sender: FDA-Public Use
  Company Number: US-AMGEN-USASP2011005191

PATIENT
  Age: 72 Year
  Sex: Male

DRUGS (21)
  1. ACIDOPHILUS [Concomitant]
     Dosage: UNK UNK, BID
     Route: 048
     Dates: start: 20080102
  2. COMBIVENT [Concomitant]
     Dosage: UNK UNK, QID
     Route: 055
     Dates: start: 20101015
  3. TUMS                               /00108001/ [Concomitant]
     Dosage: 500 MG, BID
     Route: 048
     Dates: start: 20101015
  4. PREDNISONE [Concomitant]
     Dosage: 25 MG, QD
     Route: 048
     Dates: start: 20101015
  5. VITAMIN C                          /00008001/ [Concomitant]
     Dosage: 500 MG, QD
     Route: 048
     Dates: start: 20100303
  6. VITAMIN A                          /00056001/ [Concomitant]
     Dosage: 10000 IU, QD
     Route: 048
     Dates: start: 20100303
  7. OXYGEN [Concomitant]
     Dosage: UNK
  8. VITAMIN B [Concomitant]
     Dosage: UNK UNK, QHS
     Route: 048
     Dates: start: 20100419
  9. PRAVASTATIN [Concomitant]
     Dosage: 40 MG, QHS
     Route: 048
     Dates: start: 20080102
  10. FEOSOL [Concomitant]
     Dosage: UNK
  11. VITAMIN D [Concomitant]
     Dosage: UNK UNK, QD
     Route: 048
     Dates: start: 20100419
  12. SINGULAIR [Concomitant]
     Dosage: 10 MG, QD
     Route: 048
     Dates: start: 20071218
  13. DILACOR                            /00014302/ [Concomitant]
     Dosage: 180 MG, QD
     Route: 048
     Dates: start: 20100819
  14. ARAVA [Concomitant]
     Dosage: 20 MG, QD
     Route: 048
     Dates: start: 20100303
  15. PRILOSEC [Concomitant]
     Dosage: 20 MG, QD
     Route: 048
     Dates: start: 20071218
  16. TYLENOL (CAPLET) [Concomitant]
     Dosage: 650 MG, PRN
     Route: 048
     Dates: start: 20101015
  17. VITAMIN E                          /00110501/ [Concomitant]
     Dosage: 400 IU, BID
     Route: 048
     Dates: start: 20100915
  18. MULTI-VITAMINS [Concomitant]
     Dosage: UNK UNK, QD
     Route: 048
     Dates: start: 20071218
  19. LORTAB [Concomitant]
     Dosage: UNK UNK, PRN
     Route: 048
  20. ENBREL [Suspect]
     Indication: RHEUMATOID ARTHRITIS
     Dosage: 50 MG, QWK
     Dates: start: 20100501
  21. FOLVITE                            /00024201/ [Concomitant]
     Dosage: 1 MG, QD
     Route: 048
     Dates: start: 20100303

REACTIONS (27)
  - GASTROINTESTINAL HAEMORRHAGE [None]
  - OBESITY [None]
  - RENAL FAILURE [None]
  - SHOCK [None]
  - VENTRICULAR TACHYCARDIA [None]
  - CARDIAC FAILURE CONGESTIVE [None]
  - ASTHMA [None]
  - SLEEP APNOEA SYNDROME [None]
  - ACUTE MYOCARDIAL INFARCTION [None]
  - STASIS DERMATITIS [None]
  - RHEUMATOID ARTHRITIS [None]
  - CHRONIC OBSTRUCTIVE PULMONARY DISEASE [None]
  - ATRIAL FIBRILLATION [None]
  - SUPRAVENTRICULAR TACHYCARDIA [None]
  - ANAEMIA [None]
  - PNEUMONIA [None]
  - RECTAL HAEMORRHAGE [None]
  - HYPOTENSION [None]
  - CELLULITIS [None]
  - POLYP [None]
  - ADVERSE REACTION [None]
  - RESPIRATORY FAILURE [None]
  - HYPOVENTILATION [None]
  - MALNUTRITION [None]
  - PULMONARY HYPERTENSION [None]
  - MYOCARDIAL ISCHAEMIA [None]
  - INFECTION [None]
